FAERS Safety Report 9606955 (Version 2)
Quarter: 2014Q1

REPORT INFORMATION
  Report Type: Report from Study
  Country: GB (occurrence: GB)
  Receive Date: 20131008
  Receipt Date: 20140106
  Transmission Date: 20141002
  Serious: Yes (Hospitalization)
  Sender: FDA-Public Use
  Company Number: GB-ROCHE-1282358

PATIENT
  Age: 55 Year
  Sex: Female
  Weight: 85.2 kg

DRUGS (11)
  1. TRASTUZUMAB EMTANSINE [Suspect]
     Indication: BREAST CANCER
     Dosage: DATE OF LAST DOSE PROIR TO SAE ON 20/AUG/2013
     Route: 042
     Dates: start: 20120212, end: 20130915
  2. TRASTUZUMAB EMTANSINE [Suspect]
     Route: 042
     Dates: start: 20131001
  3. CHLORAMPHENICOL [Concomitant]
     Dosage: 2 DROP
     Route: 065
     Dates: start: 20130212
  4. ARTHROTEC [Concomitant]
     Route: 065
     Dates: start: 20130212
  5. DOMPERIDONE [Concomitant]
     Route: 065
     Dates: start: 20130212, end: 20130216
  6. PREDNISOLONE [Concomitant]
     Route: 065
     Dates: start: 20130212, end: 20130218
  7. PREDNISOLONE [Concomitant]
     Route: 065
     Dates: start: 20130219, end: 20130225
  8. PREDNISOLONE [Concomitant]
     Route: 065
     Dates: start: 20130226, end: 20130304
  9. LANSOPRAZOLE [Concomitant]
     Route: 065
  10. CYCLIZINE [Concomitant]
     Route: 065
     Dates: start: 20130212
  11. LOPERAMIDE [Concomitant]
     Route: 065
     Dates: start: 20130305

REACTIONS (1)
  - Convulsion [Recovered/Resolved with Sequelae]
